FAERS Safety Report 12944445 (Version 1)
Quarter: 2016Q4

REPORT INFORMATION
  Report Type: Spontaneous
  Country: US (occurrence: US)
  Receive Date: 20161115
  Receipt Date: 20161115
  Transmission Date: 20170207
  Serious: Yes (Hospitalization)
  Sender: FDA-Public Use
  Company Number: None

PATIENT
  Age: 67 Year
  Sex: Female
  Weight: 102 kg

DRUGS (4)
  1. METHOTREXATE. [Suspect]
     Active Substance: METHOTREXATE
     Dates: end: 20161111
  2. CYCLOPHOSPHAMIDE. [Suspect]
     Active Substance: CYCLOPHOSPHAMIDE
     Dates: end: 20161021
  3. MERCAPTOPURINE. [Suspect]
     Active Substance: MERCAPTOPURINE
     Dates: end: 20161103
  4. CYTARABINE. [Suspect]
     Active Substance: CYTARABINE
     Dates: end: 20161031

REACTIONS (5)
  - Rash [None]
  - Neutropenia [None]
  - Catheter site rash [None]
  - Deep vein thrombosis [None]
  - Pyrexia [None]

NARRATIVE: CASE EVENT DATE: 20161113
